FAERS Safety Report 4680755-1 (Version None)
Quarter: 2005Q2

REPORT INFORMATION
  Report Type: 
  Country: None (occurrence: None)
  Receive Date: 20050603
  Receipt Date: 20050524
  Transmission Date: 20051028
  Serious: Yes (Disabling)
  Sender: FDA-Public Use
  Company Number: US-JNJFOC-20050506518

PATIENT
  Age: 61 Year
  Sex: Male
  Weight: 83.92 kg

DRUGS (4)
  1. REMICADE [Suspect]
     Dosage: 3 VIALS
     Route: 042
  2. REMICADE [Suspect]
     Indication: RHEUMATOID ARTHRITIS
     Dosage: 3 VIALS
     Route: 042
  3. CELEBREX [Concomitant]
     Indication: RHEUMATOID ARTHRITIS
  4. PREDNISONE TAB [Concomitant]
     Indication: RHEUMATOID ARTHRITIS

REACTIONS (3)
  - JOINT SWELLING [None]
  - OEDEMA PERIPHERAL [None]
  - SHOULDER PAIN [None]
